FAERS Safety Report 17174199 (Version 1)
Quarter: 2019Q4

REPORT INFORMATION
  Report Type: Spontaneous
  Country: IT (occurrence: IT)
  Receive Date: 20191219
  Receipt Date: 20191219
  Transmission Date: 20200122
  Serious: Yes (Hospitalization)
  Sender: FDA-Public Use
  Company Number: IT-TEVA-2019-IT-1153321

PATIENT
  Age: 46 Year
  Sex: Male

DRUGS (1)
  1. RYTMONORM [Suspect]
     Active Substance: PROPAFENONE
     Indication: ARRHYTHMIA
     Dosage: 2 DOSAGE FORMS
     Route: 048
     Dates: start: 20191017, end: 20191017

REACTIONS (2)
  - Therapy non-responder [Recovering/Resolving]
  - Atrial fibrillation [Recovering/Resolving]

NARRATIVE: CASE EVENT DATE: 20191017
